FAERS Safety Report 14657199 (Version 9)
Quarter: 2021Q2

REPORT INFORMATION
  Report Type: Spontaneous
  Country: US (occurrence: US)
  Receive Date: 20180319
  Receipt Date: 20210412
  Transmission Date: 20210716
  Serious: Yes (Hospitalization, Other)
  Sender: FDA-Public Use
  Company Number: US-PFIZER INC-2018110694

PATIENT
  Age: 66 Year
  Sex: Female

DRUGS (2)
  1. PREMARIN [Suspect]
     Active Substance: ESTROGENS, CONJUGATED
     Indication: HOT FLUSH
     Dosage: 1 DF, 1X/DAY (1 A DAY 09:25)
     Dates: start: 1991
  2. PREMARIN [Suspect]
     Active Substance: ESTROGENS, CONJUGATED
     Indication: VULVOVAGINAL DRYNESS
     Dosage: 1 DF (NOT TAKE ONE OF THEM EVERY DAY)

REACTIONS (7)
  - Feeling abnormal [Unknown]
  - Road traffic accident [Unknown]
  - Illness [Unknown]
  - Injury [Unknown]
  - Memory impairment [Recovered/Resolved]
  - Intentional product misuse [Unknown]
  - Arthropathy [Recovered/Resolved]

NARRATIVE: CASE EVENT DATE: 20200513
